FAERS Safety Report 20376986 (Version 1)
Quarter: 2022Q1

REPORT INFORMATION
  Report Type: Spontaneous
  Country: BR (occurrence: BR)
  Receive Date: 20220125
  Receipt Date: 20220125
  Transmission Date: 20220423
  Serious: Yes (Other)
  Sender: FDA-Public Use
  Company Number: BR-NOVARTISPH-NVSC2022BR014980

PATIENT
  Age: 80 Year
  Sex: Female

DRUGS (1)
  1. DIOVAN HCT [Suspect]
     Active Substance: HYDROCHLOROTHIAZIDE\VALSARTAN
     Indication: Hypertension
     Dosage: 1 DOSAGE FORM (STARTED ABOUT 3 YEARS AGO OR MORE)
     Route: 065

REACTIONS (4)
  - Blood pressure abnormal [Not Recovered/Not Resolved]
  - Hypertension [Unknown]
  - Nasopharyngitis [Unknown]
  - Feeling abnormal [Unknown]
